FAERS Safety Report 16107573 (Version 1)
Quarter: 2019Q1

REPORT INFORMATION
  Report Type: Spontaneous
  Country: US (occurrence: US)
  Receive Date: 20190322
  Receipt Date: 20190322
  Transmission Date: 20190418
  Serious: No
  Sender: FDA-Public Use
  Company Number: US-OMEROS CORPORATION-2018OME00006

PATIENT
  Age: 75 Year
  Sex: Male
  Weight: 87.98 kg

DRUGS (25)
  1. BSS (ALCON) [Concomitant]
     Dosage: 500 ML
     Dates: start: 20181003, end: 20181003
  2. UNSPECIFIED DUOVISC DEVICE (ALCON) [Concomitant]
     Dosage: UNK
     Route: 031
     Dates: start: 20181003, end: 20181003
  3. KETOROLAC [Concomitant]
     Active Substance: KETOROLAC\KETOROLAC TROMETHAMINE
     Dosage: UNK
     Dates: start: 20181003, end: 20181003
  4. VIGAMOX [Concomitant]
     Active Substance: MOXIFLOXACIN HYDROCHLORIDE
     Dosage: UNK
     Dates: start: 20181003, end: 20181003
  5. METOPROLOL. [Concomitant]
     Active Substance: METOPROLOL
  6. NEXIUM [Concomitant]
     Active Substance: ESOMEPRAZOLE MAGNESIUM
  7. EPINEPHRINE-PF (BPI LABS) [Concomitant]
     Dosage: 0.3 ML WITH BSS
     Dates: start: 20181003, end: 20181003
  8. TROPICAMIDE. [Concomitant]
     Active Substance: TROPICAMIDE
     Dosage: UNK
     Dates: start: 20181003, end: 20181003
  9. PHENYLEPHRINE [Concomitant]
     Active Substance: PHENYLEPHRINE\PHENYLEPHRINE HYDROCHLORIDE
     Dosage: UNK
     Dates: start: 20181003, end: 20181003
  10. TETRACAINE. [Concomitant]
     Active Substance: TETRACAINE
     Dosage: UNK
     Dates: start: 20181003, end: 20181003
  11. LIDOCAINE. [Concomitant]
     Active Substance: LIDOCAINE
     Dosage: UNK
     Dates: start: 20181003, end: 20181003
  12. AMLODIPINE [Concomitant]
     Active Substance: AMLODIPINE BESYLATE
  13. MANNITOL. [Concomitant]
     Active Substance: MANNITOL
     Dosage: UNK
     Dates: start: 20181003, end: 20181003
  14. VERSED [Concomitant]
     Active Substance: MIDAZOLAM HYDROCHLORIDE
     Dosage: UNK
     Dates: start: 20181003, end: 20181003
  15. GENTAMICIN-PF (FRESENIUS KABI) [Concomitant]
     Dosage: 4 MG WITH BSS
     Dates: start: 20181003, end: 20181003
  16. LOSARTAN. [Concomitant]
     Active Substance: LOSARTAN
  17. ASA [Concomitant]
     Active Substance: ASPIRIN
  18. ATORVASTATIN [Concomitant]
     Active Substance: ATORVASTATIN
  19. CYCLOPENTOLATE. [Concomitant]
     Active Substance: CYCLOPENTOLATE
     Dosage: UNK
     Dates: start: 20181003, end: 20181003
  20. ATROPINE. [Concomitant]
     Active Substance: ATROPINE
     Dosage: UNK
     Dates: start: 20181003, end: 20181003
  21. BETADINE [Concomitant]
     Active Substance: POVIDONE-IODINE
     Dosage: UNK
     Dates: start: 20181003, end: 20181003
  22. CO Q10 W/LUTEIN [Concomitant]
  23. OMIDRIA [Suspect]
     Active Substance: KETOROLAC\PHENYLEPHRINE
     Indication: LENS EXTRACTION
     Dosage: ADDED TO BSS, ONCE
     Route: 047
     Dates: start: 20181003, end: 20181003
  24. TETRAVISC [Concomitant]
     Active Substance: TETRACAINE HYDROCHLORIDE
     Dosage: UNK
     Dates: start: 20181003, end: 20181003
  25. TAMSULOSIN [Concomitant]
     Active Substance: TAMSULOSIN

REACTIONS (1)
  - Corneal oedema [Recovered/Resolved]

NARRATIVE: CASE EVENT DATE: 20181004
